FAERS Safety Report 12695813 (Version 1)
Quarter: 2016Q3

REPORT INFORMATION
  Report Type: Spontaneous
  Country: US (occurrence: US)
  Receive Date: 20160829
  Receipt Date: 20160829
  Transmission Date: 20161109
  Serious: No
  Sender: FDA-Public Use
  Company Number: US-009507513-1608USA014163

PATIENT
  Sex: Male

DRUGS (1)
  1. NUVARING [Suspect]
     Active Substance: ETHINYL ESTRADIOL\ETONOGESTREL
     Indication: CONTRACEPTION
     Dosage: STRENGTH REPORTED AS:0.15/.12, UNITS NOT PROVIDED,DOSE/FREQUENCY:1 DF, Q3W

REACTIONS (1)
  - Medical device site discomfort [Unknown]

NARRATIVE: CASE EVENT DATE: 201606
